FAERS Safety Report 8243963-9 (Version None)
Quarter: 2012Q1

REPORT INFORMATION
  Report Type: 
  Country: None (occurrence: None)
  Receive Date: 20120329
  Receipt Date: 20111007
  Transmission Date: 20120608
  Serious: No
  Sender: FDA-Public Use
  Company Number: US-MYLANLABS-2011S1021047

PATIENT
  Age: 46 Year
  Sex: Female

DRUGS (2)
  1. ESTRADIOL [Suspect]
     Indication: ARTIFICIAL MENOPAUSE
     Dosage: QWEEK
     Route: 062
     Dates: start: 20090101
  2. IBUPROFEN (ADVIL) [Concomitant]

REACTIONS (3)
  - APPLICATION SITE PRURITUS [None]
  - DRUG INEFFECTIVE [None]
  - HOT FLUSH [None]
